FAERS Safety Report 8558709-4 (Version None)
Quarter: 2012Q3

REPORT INFORMATION
  Report Type: 
  Country: None (occurrence: None)
  Receive Date: 20120801
  Receipt Date: 20120727
  Transmission Date: 20120928
  Serious: Yes (Other)
  Sender: FDA-Public Use
  Company Number: US-009507513-2012SP008236

PATIENT

DRUGS (6)
  1. PEG-INTRON [Suspect]
     Dosage: UNK UNK, UNKNOWN
     Route: 065
     Dates: start: 20111221, end: 20120406
  2. VICTRELIS [Suspect]
     Dosage: UNK
     Route: 065
     Dates: start: 20111221, end: 20120413
  3. VICTRELIS [Suspect]
     Indication: HEPATITIS C
     Dosage: UNK UNK, UNKNOWN
     Route: 065
     Dates: start: 20110922, end: 20111201
  4. REBETOL [Suspect]
     Dosage: UNK UNK, UNKNOWN
     Route: 065
     Dates: start: 20110824, end: 20111201
  5. REBETOL [Suspect]
     Dosage: UNK UNK, UNKNOWN
     Route: 065
     Dates: start: 20111221, end: 20120413
  6. PEG-INTRON [Suspect]
     Indication: HEPATITIS C
     Dosage: UNK UNK, UNKNOWN
     Route: 065
     Dates: start: 20110824, end: 20111201

REACTIONS (17)
  - DEHYDRATION [None]
  - CHAPPED LIPS [None]
  - COUGH [None]
  - SLEEP DISORDER [None]
  - FALL [None]
  - MUSCLE TWITCHING [None]
  - SENSORY LOSS [None]
  - RHINORRHOEA [None]
  - EATING DISORDER [None]
  - INFECTION [None]
  - DRY MOUTH [None]
  - UNDERDOSE [None]
  - BACK PAIN [None]
  - MUSCULOSKELETAL PAIN [None]
  - INFLUENZA [None]
  - AGEUSIA [None]
  - THIRST [None]
